FAERS Safety Report 13397045 (Version 1)
Quarter: 2017Q2

REPORT INFORMATION
  Report Type: Spontaneous
  Country: GB (occurrence: GB)
  Receive Date: 20170403
  Receipt Date: 20170403
  Transmission Date: 20170830
  Serious: Yes (Other)
  Sender: FDA-Public Use
  Company Number: GB-PFIZER INC-2017134007

PATIENT
  Age: 8 Decade
  Sex: Female

DRUGS (2)
  1. TOVIAZ [Suspect]
     Active Substance: FESOTERODINE FUMARATE
     Dosage: UNK
  2. INSULIN [Concomitant]
     Active Substance: INSULIN NOS
     Dosage: UNK

REACTIONS (5)
  - Cataract [Unknown]
  - Balance disorder [Unknown]
  - Condition aggravated [Not Recovered/Not Resolved]
  - Urinary retention [Unknown]
  - Nocturia [Unknown]
